FAERS Safety Report 14896844 (Version 3)
Quarter: 2018Q2

REPORT INFORMATION
  Report Type: Spontaneous
  Country: US (occurrence: US)
  Receive Date: 20180515
  Receipt Date: 20180614
  Transmission Date: 20180711
  Serious: No
  Sender: FDA-Public Use
  Company Number: US-MERZ NORTH AMERICA, INC.-18MRZ-00240

PATIENT
  Age: 48 Year
  Sex: Female

DRUGS (3)
  1. BOTOX [Suspect]
     Active Substance: ONABOTULINUMTOXINA
     Indication: SKIN COSMETIC PROCEDURE
  2. STERILE NORMAL SALINE [Concomitant]
  3. ASCLERA [Suspect]
     Active Substance: POLIDOCANOL
     Indication: UNINTENTIONAL USE FOR UNAPPROVED INDICATION
     Dosage: UNKNOWN DOSE
     Route: 065
     Dates: start: 20180507, end: 20180507

REACTIONS (5)
  - Unintentional use for unapproved indication [Recovered/Resolved]
  - Paraesthesia [Recovering/Resolving]
  - Injection site pain [Not Recovered/Not Resolved]
  - Hypoaesthesia [Recovering/Resolving]
  - Therapeutic response decreased [Unknown]

NARRATIVE: CASE EVENT DATE: 20180507
